FAERS Safety Report 21325099 (Version 5)
Quarter: 2023Q2

REPORT INFORMATION
  Report Type: Report from Study
  Country: IN (occurrence: IN)
  Receive Date: 20220912
  Receipt Date: 20230609
  Transmission Date: 20230722
  Serious: Yes (Hospitalization)
  Sender: FDA-Public Use
  Company Number: IN-JNJFOC-20220909347

PATIENT
  Age: 55 Year
  Sex: Female
  Weight: 42 kg

DRUGS (31)
  1. AMIVANTAMAB [Suspect]
     Active Substance: AMIVANTAMAB
     Indication: Non-small cell lung cancer metastatic
     Dosage: COMPLETED CYCLE 3 ON 24-AUG-2022
     Route: 042
     Dates: start: 20220712, end: 20220824
  2. CARBOPLATIN [Suspect]
     Active Substance: CARBOPLATIN
     Indication: Non-small cell lung cancer metastatic
     Dosage: COMPLETED CYCLE 3 ON 24-AUG-2022
     Route: 042
     Dates: start: 20220712, end: 20220824
  3. PEMETREXED [Suspect]
     Active Substance: PEMETREXED
     Indication: Non-small cell lung cancer metastatic
     Dosage: COMPLETED CYCLE 3 ON 24-AUG-2022
     Route: 042
     Dates: start: 20220712, end: 20220824
  4. TELMISARTAN [Concomitant]
     Active Substance: TELMISARTAN
     Indication: Hypertension
     Route: 048
     Dates: start: 20190101
  5. TELMISARTAN [Concomitant]
     Active Substance: TELMISARTAN
     Route: 048
     Dates: start: 20220726
  6. THYROXINE [Concomitant]
     Active Substance: LEVOTHYROXINE
     Indication: Hypothyroidism
     Route: 048
     Dates: start: 20190101
  7. THYROXINE [Concomitant]
     Active Substance: LEVOTHYROXINE
     Route: 048
     Dates: start: 20220726
  8. HAEMUP [Concomitant]
     Indication: Non-small cell lung cancer
     Route: 048
     Dates: start: 20220703
  9. RANITIDINE HYDROCHLORIDE [Concomitant]
     Active Substance: RANITIDINE HYDROCHLORIDE
     Indication: Antacid therapy
     Route: 048
     Dates: start: 20220710
  10. DEXAMETHASONE [Concomitant]
     Active Substance: DEXAMETHASONE
     Indication: Prophylaxis
     Route: 048
     Dates: start: 20220710
  11. DEXAMETHASONE [Concomitant]
     Active Substance: DEXAMETHASONE
     Route: 048
     Dates: start: 20220825, end: 20220825
  12. IVABRADINE [Concomitant]
     Active Substance: IVABRADINE
     Indication: Sinus tachycardia
     Route: 048
     Dates: start: 20220711
  13. IVABRADINE [Concomitant]
     Active Substance: IVABRADINE
     Indication: Prophylaxis
     Route: 048
     Dates: start: 20220824
  14. LORAZEPAM [Concomitant]
     Active Substance: LORAZEPAM
     Indication: Sinus tachycardia
     Route: 048
     Dates: start: 20220711
  15. LORAZEPAM [Concomitant]
     Active Substance: LORAZEPAM
     Route: 048
     Dates: start: 20220824, end: 20220826
  16. SODIUM BICARBONATE [Concomitant]
     Active Substance: SODIUM BICARBONATE
     Indication: Antifungal prophylaxis
     Route: 048
     Dates: start: 20220726
  17. CALCIUM\CHOLECALCIFEROL [Concomitant]
     Active Substance: CALCIUM\CHOLECALCIFEROL
     Indication: Osteoporosis prophylaxis
     Route: 048
     Dates: start: 20220715, end: 20220824
  18. CALCIUM\CHOLECALCIFEROL [Concomitant]
     Active Substance: CALCIUM\CHOLECALCIFEROL
     Route: 048
     Dates: start: 20220715, end: 20220824
  19. XARELTO [Concomitant]
     Active Substance: RIVAROXABAN
     Indication: Thrombosis prophylaxis
     Route: 048
     Dates: start: 20220726, end: 20220902
  20. METFORMIN [Concomitant]
     Active Substance: METFORMIN HYDROCHLORIDE
     Indication: Type 2 diabetes mellitus
     Route: 048
     Dates: start: 20220726
  21. MAGNESIUM OROTATE [Concomitant]
     Active Substance: MAGNESIUM OROTATE
     Indication: Hypomagnesaemia
     Route: 048
     Dates: start: 20220824
  22. MUPIROCIN [Concomitant]
     Active Substance: MUPIROCIN
     Indication: Prophylaxis
     Route: 061
     Dates: start: 20220824
  23. VENUSIA [Concomitant]
     Route: 061
     Dates: start: 20220824
  24. MAGNESIUM SULFATE [Concomitant]
     Active Substance: MAGNESIUM SULFATE
     Indication: Hypomagnesaemia
     Route: 042
     Dates: start: 20220824
  25. ATIVAN [Concomitant]
     Active Substance: LORAZEPAM
  26. SALT [Concomitant]
     Active Substance: SODIUM CHLORIDE
     Indication: Prophylaxis
     Route: 048
     Dates: start: 20220824, end: 20220826
  27. BETNOVATE [Concomitant]
     Active Substance: BETAMETHASONE
     Indication: Prophylaxis
     Route: 061
     Dates: start: 20220824, end: 20220830
  28. BETNOVATE [Concomitant]
     Active Substance: BETAMETHASONE
     Route: 061
     Dates: start: 20220831, end: 20220913
  29. DOXYCYCLINE [Concomitant]
     Active Substance: DOXYCYCLINE
     Indication: Prophylaxis
     Route: 048
     Dates: start: 20220825, end: 20220908
  30. ACETAMINOPHEN [Concomitant]
     Active Substance: ACETAMINOPHEN
     Indication: Prophylaxis
     Route: 048
     Dates: start: 20220826, end: 20220827
  31. GRASTIM [Concomitant]
     Indication: Prophylaxis
     Route: 058
     Dates: start: 20220826, end: 20220827

REACTIONS (1)
  - Neutropenia [Recovered/Resolved]

NARRATIVE: CASE EVENT DATE: 20220902
